FAERS Safety Report 21648858 (Version 1)
Quarter: 2022Q4

REPORT INFORMATION
  Report Type: Spontaneous
  Country: US (occurrence: None)
  Receive Date: 20221123
  Receipt Date: 20221123
  Transmission Date: 20230112
  Serious: No
  Sender: FDA-Public Use
  Company Number: None

PATIENT
  Age: 75 Year
  Sex: Male
  Weight: 73.94 kg

DRUGS (15)
  1. ABIRATERONE [Suspect]
     Active Substance: ABIRATERONE
     Indication: Prostate cancer
     Dosage: FREQUENCY : DAILY;?
     Route: 048
  2. ALPRAZOLAM [Concomitant]
     Active Substance: ALPRAZOLAM
  3. CARVEDILOL [Concomitant]
     Active Substance: CARVEDILOL
  4. COMBIGAN [Concomitant]
     Active Substance: BRIMONIDINE TARTRATE\TIMOLOL MALEATE
  5. DICLOFENAC [Concomitant]
     Active Substance: DICLOFENAC
  6. ELIQUIS [Concomitant]
     Active Substance: APIXABAN
  7. FARXIGA [Concomitant]
     Active Substance: DAPAGLIFLOZIN PROPANEDIOL
  8. FENTANYL [Concomitant]
     Active Substance: FENTANYL
  9. LISINOPRIL [Concomitant]
     Active Substance: LISINOPRIL
  10. NITROFURANTOIN [Concomitant]
     Active Substance: NITROFURANTOIN
  11. NITROGLYCERIN [Concomitant]
     Active Substance: NITROGLYCERIN
  12. PREDNISONE [Concomitant]
     Active Substance: PREDNISONE
  13. PYRIDIUM [Concomitant]
     Active Substance: PHENAZOPYRIDINE
  14. TOLTERODINE [Concomitant]
     Active Substance: TOLTERODINE
  15. TRAVATAN Z [Concomitant]
     Active Substance: TRAVOPROST

REACTIONS (2)
  - COVID-19 [None]
  - Urinary tract infection [None]
